FAERS Safety Report 10500488 (Version 1)
Quarter: 2014Q4

REPORT INFORMATION
  Report Type: Spontaneous
  Country: US (occurrence: US)
  Receive Date: 20141006
  Receipt Date: 20141006
  Transmission Date: 20150528
  Serious: No
  Sender: FDA-Public Use
  Company Number: US-AMGEN INC.-USASP2014070022

PATIENT
  Age: 82 Year
  Sex: Female

DRUGS (4)
  1. ENALAPRIL [Concomitant]
     Active Substance: ENALAPRIL
  2. PROLIA [Suspect]
     Active Substance: DENOSUMAB
     Indication: OSTEOPENIA
     Dosage: UNK
     Route: 065
     Dates: start: 201303
  3. VITAMIN D3 [Concomitant]
     Active Substance: CHOLECALCIFEROL
  4. LEVOXYL [Concomitant]
     Active Substance: LEVOTHYROXINE SODIUM

REACTIONS (4)
  - Blood pressure increased [Unknown]
  - Condition aggravated [Unknown]
  - Nail disorder [Unknown]
  - Tooth infection [Unknown]
